FAERS Safety Report 14072495 (Version 1)
Quarter: 2017Q4

REPORT INFORMATION
  Report Type: Spontaneous
  Country: US (occurrence: None)
  Receive Date: 20171011
  Receipt Date: 20171011
  Transmission Date: 20180321
  Serious: Yes (Other)
  Sender: FDA-Public Use
  Company Number: None

PATIENT
  Age: 67 Year
  Sex: Male
  Weight: 57.27 kg

DRUGS (2)
  1. TYLENOL [Concomitant]
     Active Substance: ACETAMINOPHEN
  2. CASODEX [Suspect]
     Active Substance: BICALUTAMIDE
     Dates: end: 20170911

REACTIONS (5)
  - Incorrect dose administered [None]
  - Dyspnoea [None]
  - Encephalopathy [None]
  - Liver transplant [None]
  - Hepatic failure [None]

NARRATIVE: CASE EVENT DATE: 20170929
